FAERS Safety Report 4536847-0 (Version None)
Quarter: 2004Q4

REPORT INFORMATION
  Report Type: 
  Country: None (occurrence: None)
  Receive Date: 20041223
  Receipt Date: 20041217
  Transmission Date: 20050328
  Serious: Yes (Hospitalization)
  Sender: FDA-Public Use
  Company Number: US-GLAXOSMITHKLINE-A0537772A

PATIENT
  Age: 78 Year
  Sex: Male

DRUGS (4)
  1. ADVAIR DISKUS 100/50 [Suspect]
     Dosage: 1PUFF TWICE PER DAY
     Route: 055
  2. SINGULAIR [Concomitant]
  3. COMBIVENT [Concomitant]
  4. COUMADIN [Concomitant]

REACTIONS (5)
  - DRUG INEFFECTIVE [None]
  - DYSGEUSIA [None]
  - PHARMACEUTICAL PRODUCT COMPLAINT [None]
  - PULMONARY THROMBOSIS [None]
  - TONGUE COATED [None]
